FAERS Safety Report 23443656 (Version 2)
Quarter: 2024Q2

REPORT INFORMATION
  Report Type: Spontaneous
  Country: FR (occurrence: FR)
  Receive Date: 20240125
  Receipt Date: 20240612
  Transmission Date: 20240716
  Serious: Yes (Other)
  Sender: FDA-Public Use
  Company Number: FR-ENDO PHARMACEUTICALS INC-2024-000354

PATIENT
  Age: 78 Year
  Sex: Male

DRUGS (3)
  1. EDEX [Suspect]
     Active Substance: ALPROSTADIL
     Indication: Erectile dysfunction
     Dosage: 20 MICROGRAM, WEEKLY (20 MICROGRAM EVERY ONE WEEK) (SINCE SEVERAL YEARS) VIA INJECTABLE ROUTE
     Route: 051
     Dates: start: 2016, end: 2023
  2. ATORVASTATIN [Concomitant]
     Active Substance: ATORVASTATIN
     Indication: Product used for unknown indication
     Dosage: UNK UNKNOWN, UNKNOWN
     Route: 065
  3. IRBESARTAN [Concomitant]
     Active Substance: IRBESARTAN
     Indication: Product used for unknown indication
     Dosage: UNK UNKNOWN, UNKNOWN
     Route: 065

REACTIONS (10)
  - Angina pectoris [Recovered/Resolved]
  - Myocardial ischaemia [Recovered/Resolved]
  - Pain in extremity [Recovered/Resolved with Sequelae]
  - Dyspnoea [Recovered/Resolved with Sequelae]
  - Chest pain [Recovered/Resolved]
  - Malaise [Recovered/Resolved]
  - Computerised tomogram heart abnormal [Recovered/Resolved]
  - Cough [Recovered/Resolved with Sequelae]
  - Chest discomfort [Recovered/Resolved]
  - Rhinorrhoea [Recovered/Resolved]

NARRATIVE: CASE EVENT DATE: 20230101
